FAERS Safety Report 15087402 (Version 1)
Quarter: 2018Q2

REPORT INFORMATION
  Report Type: Spontaneous
  Country: US (occurrence: US)
  Receive Date: 20180628
  Receipt Date: 20180628
  Transmission Date: 20180711
  Serious: Yes (Other)
  Sender: FDA-Public Use
  Company Number: US-DSJP-DSU-2018-124456

PATIENT

DRUGS (2)
  1. EVOXAC [Suspect]
     Active Substance: CEVIMELINE HYDROCHLORIDE
     Indication: SJOGREN^S SYNDROME
     Dosage: 30 MG, BID
     Route: 048
     Dates: start: 1998, end: 2016
  2. EVOXAC [Suspect]
     Active Substance: CEVIMELINE HYDROCHLORIDE
     Dosage: 30 MG, ONCE EVERY 6HR
     Route: 048
     Dates: start: 2016

REACTIONS (9)
  - Saliva altered [Recovering/Resolving]
  - Dry eye [Recovering/Resolving]
  - Dyspnoea [Recovered/Resolved]
  - Corneal abrasion [Not Recovered/Not Resolved]
  - Blindness [Not Recovered/Not Resolved]
  - Poor quality sleep [Recovering/Resolving]
  - Atrioventricular block complete [Recovered/Resolved]
  - Scar [Unknown]
  - Off label use [Not Recovered/Not Resolved]

NARRATIVE: CASE EVENT DATE: 2016
